FAERS Safety Report 6548824-9 (Version None)
Quarter: 2010Q1

REPORT INFORMATION
  Report Type: 
  Country: None (occurrence: None)
  Receive Date: 20100124
  Receipt Date: 20091019
  Transmission Date: 20100710
  Serious: No
  Sender: FDA-Public Use
  Company Number: US-ALLERGAN-0914480US

PATIENT
  Age: 82 Year
  Sex: Female

DRUGS (5)
  1. RESTASIS [Suspect]
     Indication: DRY EYE
     Dosage: 1 GTT, BID
     Route: 047
     Dates: start: 20091016, end: 20091017
  2. DILTIAZEM [Concomitant]
     Indication: HYPERTENSION
  3. INDERAL [Concomitant]
     Indication: HYPERTENSION
  4. NITROLINGUAL [Concomitant]
     Indication: HYPERTENSION
  5. XANAX [Concomitant]

REACTIONS (1)
  - BLOOD PRESSURE INCREASED [None]
